FAERS Safety Report 8492136-3 (Version None)
Quarter: 2012Q3

REPORT INFORMATION
  Report Type: 
  Country: None (occurrence: None)
  Receive Date: 20120706
  Receipt Date: 20120705
  Transmission Date: 20120928
  Serious: Yes (Hospitalization)
  Sender: FDA-Public Use
  Company Number: CA-ROCHE-1084562

PATIENT
  Age: 44 Year
  Sex: Male
  Weight: 91.254 kg

DRUGS (4)
  1. PANTOPRAZOLE SODIUM [Concomitant]
     Route: 065
  2. VALTREX [Concomitant]
     Route: 065
  3. SEPTRA [Concomitant]
     Route: 042
  4. RITUXAN [Suspect]
     Indication: PRODUCT USED FOR UNKNOWN INDICATION
     Route: 042

REACTIONS (4)
  - CLOSTRIDIUM DIFFICILE COLITIS [None]
  - ABDOMINAL PAIN LOWER [None]
  - CAECITIS [None]
  - PYREXIA [None]
